FAERS Safety Report 7901284-5 (Version None)
Quarter: 2011Q4

REPORT INFORMATION
  Report Type: 
  Country: None (occurrence: None)
  Receive Date: 20111108
  Receipt Date: 20111102
  Transmission Date: 20120403
  Serious: Yes (Death, Hospitalization)
  Sender: FDA-Public Use
  Company Number: PHHY2011US49586

PATIENT
  Sex: Female
  Weight: 50 kg

DRUGS (19)
  1. NORCO [Concomitant]
     Dosage: 1 DF, EVERY 6 HOURS
     Route: 048
  2. DIPHENHYDRAMINE HCL [Concomitant]
     Dosage: 25 MG, Q4H
     Route: 048
  3. BIAXIN [Concomitant]
     Dosage: 500 MG, UNK
     Route: 048
  4. PERI-COLACE [Concomitant]
     Dosage: 2 DF, BID
     Route: 048
  5. PROTONIX [Concomitant]
     Dosage: 40 MG, DAILY
     Route: 048
  6. AMOXICILLIN [Concomitant]
     Dosage: 1000 MG, BID
     Route: 048
  7. PROVENTIL SOLUTION [Concomitant]
     Dosage: 2.5 MG, PER 3 ML
     Route: 065
  8. GLEEVEC [Suspect]
     Indication: GASTROINTESTINAL STROMAL TUMOUR
     Dosage: 400 MG, DAILY
     Route: 048
     Dates: start: 20110501
  9. GLEEVEC [Suspect]
     Dosage: 400 MG, DAILY
     Route: 048
     Dates: start: 20110602
  10. MILK OF MAGNESIA TAB [Concomitant]
     Dosage: 30 ML, TID
     Route: 048
  11. REGLAN [Concomitant]
     Dosage: 10 MG, UNK
     Route: 048
  12. ADVAIR DISKUS 100/50 [Concomitant]
  13. ATIVAN [Concomitant]
     Dosage: 0.5 MG, EVERY 8 HOURS
     Route: 065
  14. FLAGYL [Concomitant]
     Dosage: 500 MG, TID
     Route: 048
  15. ZOFRAN [Concomitant]
     Dosage: 8 MG, UNK
     Route: 042
  16. KLOR-CON [Concomitant]
     Dosage: 20 MEQ, BID
     Route: 048
  17. ALBUTEROL [Concomitant]
     Dosage: 2.5 MG, PER 3 ML
     Route: 065
  18. LASIX [Concomitant]
     Dosage: 40 MG, BID
     Route: 048
  19. SALINE [Concomitant]
     Dosage: 2.5 ML, EVERY 8 HOURS
     Route: 042

REACTIONS (16)
  - DEATH [None]
  - PULMONARY FUNCTION TEST DECREASED [None]
  - HELICOBACTER INFECTION [None]
  - VOMITING [None]
  - ABDOMINAL PAIN [None]
  - GASTROINTESTINAL HAEMORRHAGE [None]
  - OEDEMA PERIPHERAL [None]
  - DEHYDRATION [None]
  - PALLOR [None]
  - ASTHENIA [None]
  - RASH ERYTHEMATOUS [None]
  - RENAL FAILURE [None]
  - NAUSEA [None]
  - INTESTINAL OBSTRUCTION [None]
  - BLOOD PRESSURE DECREASED [None]
  - INFECTION [None]
